FAERS Safety Report 16842248 (Version 3)
Quarter: 2019Q4

REPORT INFORMATION
  Report Type: Report from Study
  Country: DE (occurrence: DE)
  Receive Date: 20190924
  Receipt Date: 20191125
  Transmission Date: 20200122
  Serious: Yes (Death, Hospitalization, Other)
  Sender: FDA-Public Use
  Company Number: DE-BRISTOL-MYERS SQUIBB COMPANY-BMS-2018-115438

PATIENT
  Age: 70 Year
  Sex: Male

DRUGS (3)
  1. NIVOLUMAB [Suspect]
     Active Substance: NIVOLUMAB
     Indication: MALIGNANT MELANOMA
     Dosage: 73 MILLIGRAM, Q2WK
     Route: 042
     Dates: start: 20180627, end: 20190830
  2. IPILIMUMAB [Suspect]
     Active Substance: IPILIMUMAB
     Indication: MALIGNANT MELANOMA
     Dosage: 219 MILLIGRAM, Q3WK
     Route: 065
     Dates: start: 20180627, end: 20180830
  3. NIVOLUMAB [Suspect]
     Active Substance: NIVOLUMAB
     Indication: PRODUCT USED FOR UNKNOWN INDICATION
     Dosage: 480 MILLIGRAM, Q4WK
     Route: 065
     Dates: start: 20181010, end: 20181216

REACTIONS (2)
  - Colitis [Unknown]
  - Death [Fatal]

NARRATIVE: CASE EVENT DATE: 20181019
